FAERS Safety Report 23137492 (Version 1)
Quarter: 2023Q4

REPORT INFORMATION
  Report Type: Spontaneous
  Country: US (occurrence: US)
  Receive Date: 20231102
  Receipt Date: 20231102
  Transmission Date: 20240110
  Serious: Yes (Death, Other)
  Sender: FDA-Public Use
  Company Number: US-PURDUE PHARMA-USA-2023-0304081

PATIENT
  Sex: Female

DRUGS (1)
  1. OXYCONTIN [Suspect]
     Active Substance: OXYCODONE HYDROCHLORIDE
     Indication: Product used for unknown indication
     Dosage: EVERY 8 HOURS, TID (FOR THREE WEEKS)
     Route: 048

REACTIONS (4)
  - Overdose [Fatal]
  - Drug dependence [Unknown]
  - Impaired quality of life [Unknown]
  - Personality change [Unknown]

NARRATIVE: CASE EVENT DATE: 20200703
